FAERS Safety Report 7662199-3 (Version None)
Quarter: 2011Q3

REPORT INFORMATION
  Report Type: 
  Country: None (occurrence: None)
  Receive Date: 20110805
  Receipt Date: 20101221
  Transmission Date: 20111222
  Serious: No
  Sender: FDA-Public Use
  Company Number: US-ABBOTT-10P-163-0692919-00

PATIENT
  Sex: Male
  Weight: 90.8 kg

DRUGS (5)
  1. MULTI-VITAMINS [Concomitant]
     Indication: PRODUCT USED FOR UNKNOWN INDICATION
  2. FISH OIL [Concomitant]
     Indication: PRODUCT USED FOR UNKNOWN INDICATION
  3. NIASPAN [Suspect]
     Indication: HIGH DENSITY LIPOPROTEIN DECREASED
     Dosage: AT BEDTIME
     Dates: start: 20101201
  4. ASPIRIN [Concomitant]
     Indication: PRODUCT USED FOR UNKNOWN INDICATION
     Dosage: AT BEDTIME
  5. NIASPAN [Suspect]
     Indication: BLOOD TRIGLYCERIDES INCREASED

REACTIONS (1)
  - FLUSHING [None]
